FAERS Safety Report 7387147-5 (Version None)
Quarter: 2011Q1

REPORT INFORMATION
  Report Type: 
  Country: None (occurrence: None)
  Receive Date: 20110331
  Receipt Date: 20110329
  Transmission Date: 20110831
  Serious: Yes (Death, Life-Threatening, Hospitalization, Disabling, Other)
  Sender: FDA-Public Use
  Company Number: A0918319A

PATIENT
  Age: 89 Year
  Sex: Female

DRUGS (12)
  1. TUMS [Concomitant]
  2. ATENOLOL [Concomitant]
  3. HYDROCHLOROTHIAZIDE [Concomitant]
  4. PRILOSEC [Concomitant]
  5. ZOCOR [Concomitant]
  6. FOLIC ACID [Concomitant]
  7. IRON [Concomitant]
  8. CONSTIPATION DRUG [Concomitant]
  9. MYLANTA [Concomitant]
  10. PROMACTA [Suspect]
     Indication: IDIOPATHIC THROMBOCYTOPENIC PURPURA
     Dosage: 50MG PER DAY
     Route: 048
  11. DUONEB [Concomitant]
     Route: 055
  12. SYNTHROID [Concomitant]

REACTIONS (7)
  - ANAEMIA [None]
  - PNEUMONIA [None]
  - PLATELET COUNT DECREASED [None]
  - DRUG INEFFECTIVE [None]
  - IDIOPATHIC THROMBOCYTOPENIC PURPURA [None]
  - HYPOTENSION [None]
  - HAEMORRHAGE [None]
